FAERS Safety Report 24071987 (Version 1)
Quarter: 2024Q3

REPORT INFORMATION
  Report Type: Spontaneous
  Country: US (occurrence: None)
  Receive Date: 20240709
  Receipt Date: 20240709
  Transmission Date: 20241016
  Serious: Yes (Disabling)
  Sender: Public
  Company Number: None

PATIENT
  Age: 61 Year
  Sex: Male
  Weight: 122.47 kg

DRUGS (8)
  1. CLOZAPINE [Suspect]
     Active Substance: CLOZAPINE
     Indication: Mental disorder
     Dosage: 1 5 TAB AM  + BEDTIME BYMOUTH
  2. HYDROCHLOROTHIAZIDE\VALSARTAN [Suspect]
     Active Substance: HYDROCHLOROTHIAZIDE\VALSARTAN
     Indication: Blood pressure measurement
     Dosage: AM BY MOUTH
     Route: 048
  3. OMEPRAZOLE [Concomitant]
     Active Substance: OMEPRAZOLE
  4. CLOZAPINE [Concomitant]
     Active Substance: CLOZAPINE
  5. PRAVASTATIN SODIUM [Concomitant]
     Active Substance: PRAVASTATIN SODIUM
  6. METFORMIN HYDROCHLORIDE [Concomitant]
     Active Substance: METFORMIN HYDROCHLORIDE
  7. VALSARTAN AND HYDROCHLOROTHIAZIDE [Concomitant]
     Active Substance: HYDROCHLOROTHIAZIDE\VALSARTAN
  8. VITAMIN D3 [Concomitant]
     Active Substance: CHOLECALCIFEROL

REACTIONS (24)
  - Fatigue [None]
  - Asthenia [None]
  - Joint swelling [None]
  - Peripheral swelling [None]
  - Abnormal weight gain [None]
  - Dizziness postural [None]
  - Dizziness [None]
  - Gait disturbance [None]
  - Memory impairment [None]
  - Hyperhidrosis [None]
  - Chills [None]
  - Vomiting [None]
  - Diarrhoea [None]
  - Drooling [None]
  - Tremor [None]
  - Tremor [None]
  - Vision blurred [None]
  - Constipation [None]
  - Muscle twitching [None]
  - Tardive dyskinesia [None]
  - Swelling face [None]
  - Chromaturia [None]
  - Rash pruritic [None]
  - Drug interaction [None]

NARRATIVE: CASE EVENT DATE: 20200303
